FAERS Safety Report 5926277-9 (Version None)
Quarter: 2008Q4

REPORT INFORMATION
  Report Type: 
  Country: None (occurrence: None)
  Receive Date: 20081022
  Receipt Date: 20081021
  Transmission Date: 20090506
  Serious: Yes (Hospitalization)
  Sender: FDA-Public Use
  Company Number: FR-WYE-G01973508

PATIENT
  Sex: Male

DRUGS (2)
  1. RAPAMUNE [Suspect]
     Dosage: UNKNOWN
     Route: 048
     Dates: start: 20080507, end: 20080701
  2. MABTHERA [Suspect]
     Indication: PROPHYLAXIS AGAINST TRANSPLANT REJECTION
     Dosage: 375 MG PER M^2 PER CYCLE
     Route: 058
     Dates: start: 20080313, end: 20080430

REACTIONS (5)
  - CHILLS [None]
  - FEBRILE NEUTROPENIA [None]
  - GENERAL PHYSICAL HEALTH DETERIORATION [None]
  - INFLAMMATION [None]
  - SHIFT TO THE LEFT [None]
